FAERS Safety Report 17459214 (Version 2)
Quarter: 2020Q1

REPORT INFORMATION
  Report Type: Spontaneous
  Country: JP (occurrence: JP)
  Receive Date: 20200226
  Receipt Date: 20200306
  Transmission Date: 20200409
  Serious: Yes (Death, Other)
  Sender: FDA-Public Use
  Company Number: JP-JAZZ-2020-JP-002692

PATIENT
  Age: 17 Year
  Sex: Female

DRUGS (1)
  1. DEFITELIO [Suspect]
     Active Substance: DEFIBROTIDE SODIUM
     Indication: VENOOCCLUSIVE LIVER DISEASE
     Dosage: 25 MG/KG/DAY
     Route: 042
     Dates: start: 20191025, end: 201910

REACTIONS (4)
  - Skin haemorrhage [Unknown]
  - Graft versus host disease [Fatal]
  - Off label use [Unknown]
  - Epistaxis [Unknown]

NARRATIVE: CASE EVENT DATE: 20191025
